FAERS Safety Report 18125103 (Version 4)
Quarter: 2020Q3

REPORT INFORMATION
  Report Type: Spontaneous
  Country: JP (occurrence: JP)
  Receive Date: 20200807
  Receipt Date: 20200828
  Transmission Date: 20201103
  Serious: Yes (Hospitalization, Other)
  Sender: FDA-Public Use
  Company Number: JP-AMGEN-JPNSP2020108492

PATIENT
  Age: 32 Year
  Sex: Male
  Weight: 68 kg

DRUGS (4)
  1. BLINCYTO [Suspect]
     Active Substance: BLINATUMOMAB
     Indication: ACUTE LYMPHOCYTIC LEUKAEMIA REFRACTORY
     Dosage: 9 MICROGRAM, QD
     Route: 041
     Dates: start: 20200422, end: 20200428
  2. METHOTREXATE. [Suspect]
     Active Substance: METHOTREXATE
     Indication: ACUTE LYMPHOCYTIC LEUKAEMIA
     Dosage: 5600 MILLIGRAM
     Route: 065
     Dates: start: 20200107
  3. BLINCYTO [Suspect]
     Active Substance: BLINATUMOMAB
     Dosage: 28 MICROGRAM, QD
     Route: 041
     Dates: start: 20200429, end: 20200519
  4. METHOTREXATE. [Suspect]
     Active Substance: METHOTREXATE
     Dosage: 285 MILLIGRAM, Q2WK
     Route: 065
     Dates: start: 20200615, end: 20200615

REACTIONS (6)
  - Dermatitis exfoliative generalised [Recovered/Resolved]
  - White blood cell count decreased [Recovered/Resolved]
  - Erythema [Recovered/Resolved]
  - Renal impairment [Recovered/Resolved]
  - Stomatitis [Recovered/Resolved]
  - Platelet count decreased [Recovered/Resolved]

NARRATIVE: CASE EVENT DATE: 20200520
